FAERS Safety Report 24746456 (Version 1)
Quarter: 2024Q4

REPORT INFORMATION
  Report Type: Spontaneous
  Country: CH (occurrence: CH)
  Receive Date: 20241218
  Receipt Date: 20241218
  Transmission Date: 20250115
  Serious: Yes (Hospitalization)
  Sender: ROCHE
  Company Number: None

PATIENT
  Age: 65 Year
  Sex: Female
  Weight: 52 kg

DRUGS (3)
  1. OCREVUS [Suspect]
     Active Substance: OCRELIZUMAB
     Indication: Relapsing-remitting multiple sclerosis
     Route: 042
     Dates: start: 20200715, end: 202112
  2. METHOTREXATE [Suspect]
     Active Substance: METHOTREXATE
     Indication: Myopathy
     Dosage: LOW DOSE.
     Route: 058
     Dates: start: 20220628, end: 202401
  3. TERIPARATIDE [Suspect]
     Active Substance: TERIPARATIDE
     Indication: Osteoporotic fracture
     Route: 058
     Dates: start: 20220906, end: 20240912

REACTIONS (1)
  - Myelodysplastic syndrome transformation [Recovered/Resolved]

NARRATIVE: CASE EVENT DATE: 20231201
